FAERS Safety Report 16391257 (Version 1)
Quarter: 2019Q2

REPORT INFORMATION
  Report Type: Spontaneous
  Country: US (occurrence: US)
  Receive Date: 20190604
  Receipt Date: 20190604
  Transmission Date: 20190711
  Serious: Yes (Other)
  Sender: FDA-Public Use
  Company Number: PHEH2019US023189

PATIENT
  Sex: Female
  Weight: 61.22 kg

DRUGS (7)
  1. AMITRIPTYLINE [Suspect]
     Active Substance: AMITRIPTYLINE
     Indication: CYCLIC VOMITING SYNDROME
     Dosage: UNK
     Route: 065
     Dates: start: 2017, end: 2018
  2. NORTRIPTYLINE [Suspect]
     Active Substance: NORTRIPTYLINE
     Dosage: 25 MG, QD
     Route: 048
  3. EMEND [Concomitant]
     Active Substance: APREPITANT
     Indication: PRODUCT USED FOR UNKNOWN INDICATION
     Dosage: 80 MG, QD
     Route: 065
     Dates: start: 201902
  4. NORTRIPTYLINE [Suspect]
     Active Substance: NORTRIPTYLINE
     Dosage: 75 MG, QD
     Route: 048
     Dates: start: 20190319, end: 20190325
  5. NORTRIPTYLINE [Suspect]
     Active Substance: NORTRIPTYLINE
     Dosage: 50 MG, QD
     Route: 048
     Dates: start: 20190326, end: 20190329
  6. NORTRIPTYLINE [Suspect]
     Active Substance: NORTRIPTYLINE
     Indication: CYCLIC VOMITING SYNDROME
     Dosage: 75 MG, QD (50 AND 25 MG CAPSULES)
     Route: 048
     Dates: start: 2018, end: 2018
  7. NORTRIPTYLINE [Suspect]
     Active Substance: NORTRIPTYLINE
     Dosage: 100 MG, QD (TWO 50MG CAPSULES)
     Route: 048

REACTIONS (4)
  - Vomiting [Unknown]
  - Pruritus [Not Recovered/Not Resolved]
  - Cyclic vomiting syndrome [Unknown]
  - Urticaria [Not Recovered/Not Resolved]

NARRATIVE: CASE EVENT DATE: 2018
